FAERS Safety Report 15416521 (Version 1)
Quarter: 2018Q3

REPORT INFORMATION
  Report Type: Report from Study
  Country: CO (occurrence: CO)
  Receive Date: 20180924
  Receipt Date: 20180924
  Transmission Date: 20181010
  Serious: Yes (Life-Threatening)
  Sender: FDA-Public Use
  Company Number: PHHY2018CO104467

PATIENT
  Sex: Male
  Weight: 90 kg

DRUGS (3)
  1. GILENYA [Suspect]
     Active Substance: FINGOLIMOD HYDROCHLORIDE
     Dosage: 0.5 MG, QD
     Route: 048
  2. GILENYA [Suspect]
     Active Substance: FINGOLIMOD HYDROCHLORIDE
     Indication: MULTIPLE SCLEROSIS
     Dosage: 0.5 MG, QD
     Route: 048
     Dates: start: 20150825
  3. MAGNESIUM CHLORIDE. [Concomitant]
     Active Substance: MAGNESIUM CHLORIDE
     Indication: ARTHROPATHY
     Route: 065

REACTIONS (3)
  - Headache [Unknown]
  - Feeling abnormal [Unknown]
  - Muscular weakness [Unknown]
